FAERS Safety Report 7825884-6 (Version None)
Quarter: 2011Q4

REPORT INFORMATION
  Report Type: 
  Country: None (occurrence: None)
  Receive Date: 20111019
  Receipt Date: 20111004
  Transmission Date: 20120403
  Serious: Yes (Hospitalization)
  Sender: FDA-Public Use
  Company Number: TR-ROCHE-1003857

PATIENT
  Age: 59 Year
  Sex: Male

DRUGS (1)
  1. ALTEPLASE [Suspect]
     Indication: MITRAL VALVE PROLAPSE

REACTIONS (4)
  - PYREXIA [None]
  - ENDOCARDITIS [None]
  - MALAISE [None]
  - DEPRESSED LEVEL OF CONSCIOUSNESS [None]
